FAERS Safety Report 11716838 (Version 3)
Quarter: 2015Q4

REPORT INFORMATION
  Report Type: Spontaneous
  Country: US (occurrence: US)
  Receive Date: 20151104
  Receipt Date: 20151120
  Transmission Date: 20160304
  Serious: No
  Sender: FDA-Public Use
  Company Number: US-ELI_LILLY_AND_COMPANY-US201106007995

PATIENT
  Sex: Female

DRUGS (3)
  1. FORTEO [Suspect]
     Active Substance: TERIPARATIDE
     Indication: OSTEOPOROSIS
     Dosage: 20 UG, QD
     Route: 058
     Dates: start: 20110621
  2. FORTEO [Suspect]
     Active Substance: TERIPARATIDE
     Dosage: 20 UG, QD
     Route: 058
  3. FORTEO [Suspect]
     Active Substance: TERIPARATIDE
     Dosage: 20 UG, QD
     Route: 058

REACTIONS (10)
  - Bone density decreased [Unknown]
  - Bone density abnormal [Unknown]
  - Blood cholesterol increased [Unknown]
  - Peripheral swelling [Not Recovered/Not Resolved]
  - Intentional product misuse [Recovered/Resolved]
  - Vitamin D deficiency [Unknown]
  - Pain [Unknown]
  - Raynaud^s phenomenon [Unknown]
  - Joint swelling [Not Recovered/Not Resolved]
  - Nail growth abnormal [Unknown]
